FAERS Safety Report 15204784 (Version 2)
Quarter: 2018Q3

REPORT INFORMATION
  Report Type: Spontaneous
  Country: AU (occurrence: AU)
  Receive Date: 20180726
  Receipt Date: 20180910
  Transmission Date: 20181010
  Serious: No
  Sender: FDA-Public Use
  Company Number: AU-ALLERGAN-1836615US

PATIENT
  Age: 69 Year
  Sex: Female
  Weight: 64 kg

DRUGS (11)
  1. EFFEXOR [Concomitant]
     Active Substance: VENLAFAXINE HYDROCHLORIDE
     Dosage: 150 MG, UNK
  2. BOTOX [Suspect]
     Active Substance: ONABOTULINUMTOXINA
     Indication: STRABISMUS
  3. PREDNISONE. [Concomitant]
     Active Substance: PREDNISONE
     Indication: EYE DISORDER
     Dosage: 60 MG, QD
     Dates: start: 201311, end: 2017
  4. IMURAN [Concomitant]
     Active Substance: AZATHIOPRINE
     Indication: EYE DISORDER
  5. CALCIUM [Concomitant]
     Active Substance: CALCIUM
     Indication: BONE DENSITY ABNORMAL
     Dosage: EVERY 6 MONTHS
  6. JUVEDERM VOLUMA XC [Concomitant]
     Active Substance: HYALURONIC ACID\LIDOCAINE HYDROCHLORIDE
  7. BOTOX [Suspect]
     Active Substance: ONABOTULINUMTOXINA
     Indication: SKIN WRINKLING
     Dosage: UNK, SINGLE
     Route: 030
     Dates: start: 20180606, end: 20180606
  8. NEXIUM [Concomitant]
     Active Substance: ESOMEPRAZOLE MAGNESIUM
     Dosage: 20 MG, UNK
  9. FILLERS [Concomitant]
  10. PREDNISONE. [Concomitant]
     Active Substance: PREDNISONE
     Dosage: 5 MG, QD
     Dates: start: 201311
  11. METHOTREXATE. [Concomitant]
     Active Substance: METHOTREXATE
     Indication: EYE DISORDER

REACTIONS (22)
  - Diplopia [Recovered/Resolved]
  - Eye disorder [Recovered/Resolved]
  - Hypertension [Recovered/Resolved]
  - Pain [Recovered/Resolved]
  - Pain in extremity [Recovered/Resolved]
  - Drug hypersensitivity [Recovered/Resolved]
  - Arthritis [Recovered/Resolved]
  - Sinusitis [Recovered/Resolved]
  - Eyelid oedema [Recovered/Resolved]
  - Paraesthesia [Recovered/Resolved]
  - Swelling face [Recovered/Resolved]
  - Vision blurred [Recovered/Resolved]
  - Facial paresis [Recovered/Resolved]
  - Headache [Recovered/Resolved]
  - Eyelid thickening [Recovered/Resolved]
  - Muscle tightness [Recovered/Resolved]
  - Headache [Unknown]
  - Musculoskeletal pain [Recovered/Resolved]
  - Myalgia [Recovered/Resolved]
  - Neck pain [Recovered/Resolved]
  - Eye contusion [Recovered/Resolved]
  - Aphasia [Recovered/Resolved]

NARRATIVE: CASE EVENT DATE: 201806
